FAERS Safety Report 8520838-9 (Version None)
Quarter: 2012Q3

REPORT INFORMATION
  Report Type: 
  Country: None (occurrence: None)
  Receive Date: 20120719
  Receipt Date: 20120717
  Transmission Date: 20120928
  Serious: Yes (Death)
  Sender: FDA-Public Use
  Company Number: AU-B.I. PHARMACEUTICALS,INC./RIDGEFIELD-2012-AU-01259AU

PATIENT
  Sex: Female

DRUGS (13)
  1. METHYLDOPA [Concomitant]
     Indication: HYPERTENSION
  2. VALPROATE SODIUM [Concomitant]
     Indication: EPILEPSY
  3. FRUSEMDIE [Concomitant]
     Indication: CARDIAC FAILURE CONGESTIVE
  4. OLMESARTAN MEDOXOMIL [Concomitant]
     Indication: HYPERTENSION
  5. DIGOXIN [Concomitant]
     Indication: ATRIAL FIBRILLATION
  6. FELODIPINE [Concomitant]
     Indication: HYPERTENSION
  7. EZETIMIBE [Concomitant]
     Indication: BLOOD CHOLESTEROL INCREASED
  8. PRADAXA [Suspect]
     Indication: CEREBROVASCULAR ACCIDENT PROPHYLAXIS
     Dates: start: 20110713
  9. FLUTICASONE PROPIONATE/SALMETEROL [Concomitant]
  10. PRADAXA [Suspect]
     Indication: ATRIAL FIBRILLATION
  11. METFORMIN HYDROCHLORIDE [Concomitant]
     Indication: TYPE 2 DIABETES MELLITUS
  12. ISOSORBIDE DINITRATE [Concomitant]
     Indication: HYPERTENSION
  13. METOPROLOL SUCCINATE [Concomitant]
     Indication: ATRIAL FIBRILLATION

REACTIONS (1)
  - DEATH [None]
